FAERS Safety Report 6677114-9 (Version None)
Quarter: 2010Q2

REPORT INFORMATION
  Report Type: 
  Country: None (occurrence: None)
  Receive Date: 20100401
  Receipt Date: 20091107
  Transmission Date: 20101027
  Serious: No
  Sender: FDA-Public Use
  Company Number: 2009-00722

PATIENT
  Age: 47 Year
  Sex: Female
  Weight: 68.0396 kg

DRUGS (3)
  1. ZICAM COLD REMEDY GEL SWABS [Suspect]
     Indication: PROPHYLAXIS
     Dosage: QD 2005-RECENT 2009
     Dates: start: 20050101, end: 20090101
  2. ZICAM COLD REMEDY NASAL GEL [Suspect]
     Indication: PROPHYLAXIS
     Dosage: QD 2005-RECENT 2009
     Dates: start: 20050101, end: 20090101
  3. INTENSE SINUS RELIEF NASAL GEL [Suspect]
     Indication: PROPHYLAXIS
     Dosage: QD 2005-RECENT 2009
     Dates: start: 20050101, end: 20090101

REACTIONS (1)
  - AGEUSIA [None]
